FAERS Safety Report 6269075-1 (Version None)
Quarter: 2009Q3

REPORT INFORMATION
  Report Type: 
  Country: None (occurrence: None)
  Receive Date: 20090715
  Receipt Date: 20090707
  Transmission Date: 20100115
  Serious: Yes (Other)
  Sender: FDA-Public Use
  Company Number: US-PFIZER INC-2009238463

PATIENT
  Sex: Female
  Weight: 135.62 kg

DRUGS (5)
  1. LIPITOR [Suspect]
     Indication: BLOOD CHOLESTEROL INCREASED
     Dosage: FREQUENCY: 1X/DAY, EVERYDAY;
     Dates: start: 20060101, end: 20090401
  2. SERZONE [Concomitant]
     Dosage: UNK
  3. CLONAZEPAM [Concomitant]
     Indication: ANXIETY
     Dosage: UNK
  4. LEVOTHYROXINE [Concomitant]
     Indication: THYROID DISORDER
     Dosage: 100 UG, UNK
  5. ACETAMINOPHEN [Concomitant]
     Dosage: UNK

REACTIONS (7)
  - BACK PAIN [None]
  - BLOOD FOLATE DECREASED [None]
  - MUSCLE ATROPHY [None]
  - MUSCULOSKELETAL PAIN [None]
  - PAIN IN EXTREMITY [None]
  - TYPE 2 DIABETES MELLITUS [None]
  - VITAMIN D DEFICIENCY [None]
